FAERS Safety Report 6603031-6 (Version None)
Quarter: 2010Q1

REPORT INFORMATION
  Report Type: 
  Country: None (occurrence: None)
  Receive Date: 20100226
  Receipt Date: 20100218
  Transmission Date: 20100710
  Serious: Yes (Other)
  Sender: FDA-Public Use
  Company Number: US-NAPPMUNDI-USA-2010-0041699

PATIENT
  Age: 24 Year
  Sex: Female

DRUGS (1)
  1. OXYCONTIN [Suspect]
     Indication: DRUG ABUSE
     Dosage: 80 MG, DAILY
     Dates: start: 20070101

REACTIONS (5)
  - CONVULSION [None]
  - DISTURBANCE IN ATTENTION [None]
  - DRUG ABUSE [None]
  - DRUG DEPENDENCE [None]
  - HYPOXIA [None]
